FAERS Safety Report 6912588-7 (Version None)
Quarter: 2010Q3

REPORT INFORMATION
  Report Type: 
  Country: None (occurrence: None)
  Receive Date: 20100806
  Receipt Date: 20080728
  Transmission Date: 20110219
  Serious: No
  Sender: FDA-Public Use
  Company Number: US-PFIZER INC-2008063637

PATIENT
  Sex: Male

DRUGS (2)
  1. DETROL LA [Suspect]
     Dates: start: 20080101
  2. ALL OTHER THERAPEUTIC PRODUCTS [Suspect]

REACTIONS (3)
  - CONSTIPATION [None]
  - LIP DISORDER [None]
  - LIP SWELLING [None]
